FAERS Safety Report 16671897 (Version 1)
Quarter: 2019Q3

REPORT INFORMATION
  Report Type: Spontaneous
  Country: US (occurrence: US)
  Receive Date: 20190620
  Receipt Date: 20190620
  Transmission Date: 20191004
  Serious: Yes (Death)
  Sender: FDA-Public Use
  Company Number: None

PATIENT
  Age: 57 Year
  Sex: Female
  Weight: 80.5 kg

DRUGS (9)
  1. LETROZOLE. [Concomitant]
     Active Substance: LETROZOLE
  2. MARINOL [Concomitant]
     Active Substance: DRONABINOL
  3. GEMCITABINE. [Concomitant]
     Active Substance: GEMCITABINE
  4. ASPIRIN. [Concomitant]
     Active Substance: ASPIRIN
  5. LYRICA [Concomitant]
     Active Substance: PREGABALIN
  6. DECDRON [Concomitant]
  7. APIXABAN [Suspect]
     Active Substance: APIXABAN
     Indication: DEEP VEIN THROMBOSIS
     Dosage: ?          OTHER DOSE:2.5 OR 5.0 MG;?
     Route: 048
     Dates: start: 20180823, end: 20190528
  8. SYNTHROID [Concomitant]
     Active Substance: LEVOTHYROXINE SODIUM
  9. CARBOPLATIN. [Concomitant]
     Active Substance: CARBOPLATIN

REACTIONS (1)
  - Fallopian tube cancer metastatic [None]

NARRATIVE: CASE EVENT DATE: 20190617
